FAERS Safety Report 6693076-2 (Version None)
Quarter: 2010Q2

REPORT INFORMATION
  Report Type: 
  Country: None (occurrence: None)
  Receive Date: 20100422
  Receipt Date: 20100413
  Transmission Date: 20101027
  Serious: Yes (Other)
  Sender: FDA-Public Use
  Company Number: JP-SANOFI-AVENTIS-2010SA022751

PATIENT
  Age: 69 Year
  Sex: Male

DRUGS (6)
  1. ELPLAT [Suspect]
     Route: 041
     Dates: start: 20091013, end: 20091013
  2. ELPLAT [Suspect]
     Route: 041
     Dates: start: 20100330, end: 20100330
  3. CALCIUM LEVOFOLINATE [Concomitant]
     Route: 041
     Dates: start: 20091013, end: 20100330
  4. FLUOROURACIL [Concomitant]
     Route: 040
     Dates: start: 20091013, end: 20091013
  5. FLUOROURACIL [Concomitant]
     Route: 041
     Dates: start: 20091013, end: 20100330
  6. AVASTIN [Concomitant]
     Route: 041
     Dates: start: 20091013, end: 20100330

REACTIONS (1)
  - GASTROINTESTINAL MOTILITY DISORDER [None]
